FAERS Safety Report 8840345 (Version 7)
Quarter: 2016Q3

REPORT INFORMATION
  Report Type: Spontaneous
  Country: US (occurrence: US)
  Receive Date: 20121015
  Receipt Date: 20160826
  Transmission Date: 20161109
  Serious: Yes (Death, Hospitalization, Disabling, Other)
  Sender: FDA-Public Use
  Company Number: US-009507513-1210USA004480

PATIENT
  Sex: Female
  Weight: 83.9 kg

DRUGS (3)
  1. FOSAMAX [Suspect]
     Active Substance: ALENDRONATE SODIUM
     Indication: OSTEOPOROSIS
     Dosage: 70 MG, QW
     Route: 048
     Dates: start: 2008, end: 2010
  2. ALENDRONATE SODIUM. [Suspect]
     Active Substance: ALENDRONATE SODIUM
     Indication: OSTEOPOROSIS
     Dosage: 70 MG, QW
     Route: 048
     Dates: start: 20080306, end: 201010
  3. ALENDRONATE SODIUM. [Suspect]
     Active Substance: ALENDRONATE SODIUM
     Indication: OSTEOPOROSIS
     Dosage: 70 MG, UNKNOWN
     Route: 048
     Dates: start: 20080306, end: 201010

REACTIONS (41)
  - Cataract operation [Unknown]
  - Anaemia [Not Recovered/Not Resolved]
  - Fall [Unknown]
  - Calcinosis [Unknown]
  - Chronic kidney disease [Not Recovered/Not Resolved]
  - Femur fracture [Not Recovered/Not Resolved]
  - Osteopenia [Unknown]
  - Essential hypertension [Not Recovered/Not Resolved]
  - Sciatica [Unknown]
  - Spondylitis [Unknown]
  - Cardiac arrest [Fatal]
  - Arthroscopy [Unknown]
  - Impaired healing [Unknown]
  - Fall [Unknown]
  - Meniscus injury [Unknown]
  - Asthma [Unknown]
  - Contusion [Unknown]
  - Hyperlipidaemia [Unknown]
  - Restless legs syndrome [Unknown]
  - Gastrooesophageal reflux disease [Unknown]
  - Periprosthetic fracture [Unknown]
  - Medical device removal [Unknown]
  - Back injury [Unknown]
  - Phlebolith [Unknown]
  - Intervertebral disc degeneration [Unknown]
  - Haemorrhagic anaemia [Unknown]
  - Dyslipidaemia [Unknown]
  - Chronic obstructive pulmonary disease [Unknown]
  - Oxygen consumption increased [Unknown]
  - Hypoxia [Unknown]
  - Intramedullary rod insertion [Unknown]
  - Lumbar spinal stenosis [Unknown]
  - Contusion [Unknown]
  - Dizziness [Unknown]
  - Confusion postoperative [Recovering/Resolving]
  - Low turnover osteopathy [Not Recovered/Not Resolved]
  - Cardiac failure congestive [Fatal]
  - Osteoarthritis [Unknown]
  - Cardiac murmur [Unknown]
  - Fall [Unknown]
  - Haemorrhagic anaemia [Unknown]

NARRATIVE: CASE EVENT DATE: 2008
